FAERS Safety Report 10563430 (Version 2)
Quarter: 2014Q4

REPORT INFORMATION
  Report Type: Spontaneous
  Country: US (occurrence: US)
  Receive Date: 20141104
  Receipt Date: 20141104
  Transmission Date: 20150529
  Serious: Yes (Other)
  Sender: FDA-Public Use
  Company Number: US-GLAXOSMITHKLINE-B0724629A

PATIENT
  Sex: Male

DRUGS (2)
  1. ROSIGLITAZONE MALEATE. [Suspect]
     Active Substance: ROSIGLITAZONE MALEATE
     Indication: DIABETES MELLITUS
     Dosage: 8 MG, QD
     Dates: start: 200403, end: 200912
  2. AVANDIA [Suspect]
     Active Substance: ROSIGLITAZONE MALEATE
     Indication: DIABETES MELLITUS
     Dosage: 8 MG, QD
     Route: 048
     Dates: start: 20080422, end: 20090218

REACTIONS (6)
  - Bundle branch block right [Unknown]
  - Myocardial infarction [Unknown]
  - Cardiomegaly [Unknown]
  - Ischaemic cardiomyopathy [Unknown]
  - Coronary artery disease [Unknown]
  - Angina unstable [Unknown]
